FAERS Safety Report 9469882 (Version 1)
Quarter: 2013Q3

REPORT INFORMATION
  Report Type: Spontaneous
  Country: US (occurrence: None)
  Receive Date: 20130820
  Receipt Date: 20130820
  Transmission Date: 20140515
  Serious: No
  Sender: FDA-Public Use
  Company Number: None

PATIENT
  Age: 73 Year
  Sex: Male
  Weight: 112.8 kg

DRUGS (1)
  1. ALLOPURINOL [Suspect]
     Indication: GOUTY ARTHRITIS
     Dosage: 100 MG OTHER PO
     Route: 048
     Dates: start: 20130111, end: 20130128

REACTIONS (1)
  - Rash [None]
